FAERS Safety Report 14308301 (Version 1)
Quarter: 2017Q4

REPORT INFORMATION
  Report Type: Spontaneous
  Country: GB (occurrence: GB)
  Receive Date: 20171220
  Receipt Date: 20171220
  Transmission Date: 20180321
  Serious: Yes (Other)
  Sender: FDA-Public Use
  Company Number: GB-BAXTER-2017BAX042322

PATIENT
  Age: 87 Year
  Sex: Male

DRUGS (2)
  1. FLUCONAZOLE 2 MG/ML SOLUTION FOR INFUSION [Suspect]
     Active Substance: FLUCONAZOLE
     Indication: ANTIFUNGAL PROPHYLAXIS
     Dosage: PRESCRIBED FOR 28 DAYS
     Route: 065
  2. CIPROFLOXACIN 2 MG/ML SOLUTION FOR INFUSION [Suspect]
     Active Substance: CIPROFLOXACIN
     Indication: ANTIBIOTIC PROPHYLAXIS
     Dosage: PRESCRIBED FOR 28 DAYS
     Route: 065

REACTIONS (3)
  - Anxiety [Unknown]
  - Panic attack [Unknown]
  - Depression [Unknown]
